FAERS Safety Report 6345074-6 (Version None)
Quarter: 2009Q3

REPORT INFORMATION
  Report Type: 
  Country: None (occurrence: None)
  Receive Date: 20090909
  Receipt Date: 20090827
  Transmission Date: 20100115
  Serious: Yes (Other)
  Sender: FDA-Public Use
  Company Number: GB-RANBAXY-2009RR-27423

PATIENT
  Age: 53 Year
  Sex: Male
  Weight: 86 kg

DRUGS (4)
  1. SIMVASTATIN [Suspect]
     Indication: TYPE IIA HYPERLIPIDAEMIA
     Dosage: 80 MG, UNK
     Route: 048
     Dates: start: 20090328, end: 20090726
  2. DICLOFENAC [Concomitant]
     Dosage: 25 MG, UNK
     Route: 048
     Dates: start: 20070601
  3. RANITIDINE [Concomitant]
     Dosage: 150 MG, UNK
     Route: 048
     Dates: start: 20070601
  4. TAMSULOSIN HCL [Concomitant]
     Dosage: 400 MG, UNK
     Route: 048
     Dates: start: 20070301

REACTIONS (1)
  - GOUT [None]
